FAERS Safety Report 10058494 (Version 1)
Quarter: 2014Q2

REPORT INFORMATION
  Report Type: Spontaneous
  Country: ES (occurrence: ES)
  Receive Date: 20140404
  Receipt Date: 20140404
  Transmission Date: 20141212
  Serious: Yes (Life-Threatening, Hospitalization)
  Sender: FDA-Public Use
  Company Number: ES-SA-2014SA037486

PATIENT
  Age: 78 Year
  Sex: Male

DRUGS (14)
  1. CLEXANE [Suspect]
     Indication: ATRIAL FIBRILLATION
     Dosage: 60MG/12H
     Route: 058
     Dates: start: 20130403, end: 20130427
  2. ACETYLSALICYLIC ACID [Interacting]
     Indication: ACUTE MYOCARDIAL INFARCTION
     Dosage: 1CP
     Route: 048
     Dates: start: 2005
  3. CLOPIDOGREL BISULFATE [Interacting]
     Indication: CORONARY ARTERIAL STENT INSERTION
     Dosage: 1CP
     Route: 048
     Dates: start: 20130409
  4. SINTROM [Interacting]
     Indication: ATRIAL FIBRILLATION
     Dosage: SP
     Route: 048
     Dates: start: 20130425, end: 20130427
  5. SINTROM [Interacting]
     Indication: ATRIAL FIBRILLATION
     Route: 048
  6. AMIODARONE [Concomitant]
     Indication: ARRHYTHMIA
     Dosage: 200MG/8H
     Route: 048
     Dates: start: 20130417, end: 20130427
  7. ATORVASTATIN [Concomitant]
     Indication: MYOCARDIAL ISCHAEMIA
     Dosage: 0-0-1
     Route: 048
     Dates: start: 20130404
  8. CARVEDILOL [Concomitant]
     Indication: CARDIAC FAILURE CONGESTIVE
     Dosage: 1-0-1
     Route: 048
     Dates: start: 20130417
  9. LEVOTIROXINA [Concomitant]
     Indication: HYPOTHYROIDISM
     Dosage: 1CP
     Route: 048
     Dates: start: 20130409
  10. LORAZEPAM [Concomitant]
     Indication: INSOMNIA
     Dosage: 1CP A LAS 23H
     Route: 048
     Dates: start: 20130409
  11. PANTOPRAZOLE [Concomitant]
     Indication: PROPHYLAXIS AGAINST GASTROINTESTINAL ULCER
     Dosage: 1CP
     Route: 048
     Dates: start: 20130404
  12. PARACETAMOL [Concomitant]
     Route: 042
     Dates: start: 20130404
  13. RAMIPRIL [Concomitant]
     Indication: HYPERTENSION
     Dosage: 1CP
     Route: 048
     Dates: start: 20130409
  14. THIETHYLPERAZINE [Concomitant]
     Dosage: 6.5MG/12H
     Route: 048
     Dates: start: 20130424, end: 20130426

REACTIONS (2)
  - Cardiac tamponade [Recovered/Resolved]
  - Pericardial haemorrhage [Recovered/Resolved]
